FAERS Safety Report 8293752-4 (Version None)
Quarter: 2012Q2

REPORT INFORMATION
  Report Type: 
  Country: None (occurrence: None)
  Receive Date: 20120413
  Receipt Date: 20120402
  Transmission Date: 20120825
  Serious: Yes (Death, Life-Threatening)
  Sender: FDA-Public Use
  Company Number: DSM-2012-00389

PATIENT
  Age: 96 Year
  Sex: Male

DRUGS (11)
  1. OLMESARTAN MEDOXOMIL [Suspect]
     Indication: PRODUCT USED FOR UNKNOWN INDICATION
     Dosage: 10 MG, ORAL
     Route: 048
     Dates: end: 20120213
  2. XATRAL (ALFUZOSIN HYDROCHLORIDE) (ALFUZOSIN HYDROCHLORIDE) [Concomitant]
  3. TOPALGIC (TRAMADOL HYDROCHLORIDE) (TRAMADOL HYDROCHLORIDE) [Concomitant]
  4. BRISTOPEN (OXACILLIN SODIUM) (OXACILLIN SODIUM) [Concomitant]
  5. AVODART (DUTASTERIDE) (DUTASTERIDE) [Concomitant]
  6. LOVENOX [Concomitant]
  7. GENTAMYCINE (GENTAMICIN SULFATE) (GENTAMICIN SULFATE) [Concomitant]
  8. LASILIX (FUROSEMIDE SODIUM) (FUROSEMIDE SODIUM) [Suspect]
     Indication: PRODUCT USED FOR UNKNOWN INDICATION
     Dosage: 20 MG
     Dates: end: 20120213
  9. RAMIPRIL [Suspect]
     Indication: PRODUCT USED FOR UNKNOWN INDICATION
     Dosage: 2.5 MG
     Dates: start: 20120210, end: 20120213
  10. COLCHIMAX (COLCHICINE, TIEMONIUM METHYLSULPHATE, PAPAVER SOMNIFERUM LA [Concomitant]
  11. BISOPROLOL FUMARATE [Suspect]
     Indication: PRODUCT USED FOR UNKNOWN INDICATION
     Dosage: 1.25 MG
     Dates: start: 20120209, end: 20120213

REACTIONS (7)
  - RENAL FAILURE ACUTE [None]
  - HYPOTENSION [None]
  - GENERAL PHYSICAL HEALTH DETERIORATION [None]
  - DIARRHOEA [None]
  - ARTHRITIS BACTERIAL [None]
  - MONARTHRITIS [None]
  - SHOCK [None]
